FAERS Safety Report 8966825 (Version 1)
Quarter: 2012Q4

REPORT INFORMATION
  Report Type: 
  Country: IT (occurrence: IT)
  Receive Date: 20121214
  Receipt Date: 20121214
  Transmission Date: 20130627
  Serious: Yes (Other)
  Sender: FDA-Public Use
  Company Number: IT-009507513-1212ITA004534

PATIENT
  Age: 27 Year
  Sex: Female

DRUGS (2)
  1. NOROXIN [Suspect]
     Dosage: 400 mg, qd
     Route: 048
     Dates: start: 20121207, end: 20121207
  2. TRIMETON [Suspect]

REACTIONS (4)
  - Abdominal pain upper [Recovered/Resolved]
  - Flatulence [Recovered/Resolved]
  - Swelling [Recovered/Resolved]
  - Small bowel angioedema [Recovered/Resolved]
